FAERS Safety Report 18006984 (Version 2)
Quarter: 2020Q3

REPORT INFORMATION
  Report Type: Spontaneous
  Country: US (occurrence: US)
  Receive Date: 20200710
  Receipt Date: 20200727
  Transmission Date: 20201103
  Serious: No
  Sender: FDA-Public Use
  Company Number: US-KYOWAKIRIN-2020BKK011251

PATIENT

DRUGS (1)
  1. CRYSVITA [Suspect]
     Active Substance: BUROSUMAB-TWZA
     Indication: HEREDITARY HYPOPHOSPHATAEMIC RICKETS
     Dosage: 20 MG, EVERY 2 WEEKS
     Route: 058

REACTIONS (1)
  - Product dose omission issue [Recovered/Resolved]

NARRATIVE: CASE EVENT DATE: 20200701
